FAERS Safety Report 14640073 (Version 8)
Quarter: 2020Q3

REPORT INFORMATION
  Report Type: Spontaneous
  Country: FR (occurrence: FR)
  Receive Date: 20180315
  Receipt Date: 20200803
  Transmission Date: 20201102
  Serious: Yes (Hospitalization, Other)
  Sender: FDA-Public Use
  Company Number: FR-MYLANLABS-2018M1016813

PATIENT
  Age: 74 Year
  Sex: Male
  Weight: 98 kg

DRUGS (22)
  1. DOLIPRANE [Concomitant]
     Active Substance: ACETAMINOPHEN
     Dosage: UNK
  2. COLCHICINE. [Concomitant]
     Active Substance: COLCHICINE
     Indication: OEDEMA
     Route: 065
  3. COLCHICINE. [Concomitant]
     Active Substance: COLCHICINE
     Indication: INFLAMMATION
  4. AMIODARONE SANDOZ [Suspect]
     Active Substance: AMIODARONE
     Dosage: UNK
     Route: 065
     Dates: end: 20171228
  5. AMIODARONE SANDOZ [Suspect]
     Active Substance: AMIODARONE
     Dosage: UNK
     Route: 065
     Dates: start: 20171228
  6. ELIQUIS [Suspect]
     Active Substance: APIXABAN
     Dosage: 1 DF,BID (1 MORNING AND 1 IN EVENING)
     Route: 065
  7. BISOPROLOL [Suspect]
     Active Substance: BISOPROLOL
     Indication: PRODUCT USED FOR UNKNOWN INDICATION
     Dosage: 2.5 MG, QD (MORNING)
     Route: 065
     Dates: start: 20170805
  8. BISOPROLOL [Suspect]
     Active Substance: BISOPROLOL
     Dosage: 10 MG, IN THE MORNING
     Route: 065
  9. AMIODARONE SANDOZ [Suspect]
     Active Substance: AMIODARONE
     Dosage: UNK
     Route: 065
     Dates: start: 20171009
  10. CORTISONE [Concomitant]
     Active Substance: CORTISONE
     Indication: PAIN
     Dosage: 60 MILLIGRAM, QD
     Route: 065
     Dates: start: 20171229
  11. OFLOCET                            /00731801/ [Concomitant]
     Active Substance: OFLOXACIN
     Indication: PRODUCT USED FOR UNKNOWN INDICATION
     Dosage: 200 MG (IN MORNING AN EVENING FOR 10 DAY WAS PROPOSED)
     Route: 065
  12. AMIODARONE SANDOZ [Suspect]
     Active Substance: AMIODARONE
     Indication: ATRIAL FIBRILLATION
     Dosage: UNK
     Route: 065
     Dates: start: 20171106
  13. CORTISONE [Concomitant]
     Active Substance: CORTISONE
     Dosage: 10 MILLIGRAM
     Route: 065
  14. AMIODARONE SANDOZ [Suspect]
     Active Substance: AMIODARONE
     Indication: ARRHYTHMIA
     Dosage: 1 DF, QD
     Route: 065
     Dates: start: 20170911, end: 20171209
  15. CORTISONE [Concomitant]
     Active Substance: CORTISONE
     Dosage: 10 MILLIGRAM, QD
     Route: 065
  16. IBUFETUM [Concomitant]
     Active Substance: IBUPROFEN
     Indication: PRODUCT USED FOR UNKNOWN INDICATION
     Dosage: 3 DF, QD,1 APPLICATION THREE TIMES A DA
     Route: 065
     Dates: start: 20171009
  17. DOLIPRANE [Concomitant]
     Active Substance: ACETAMINOPHEN
     Indication: PRODUCT USED FOR UNKNOWN INDICATION
     Dosage: 2?3 G, UNK
     Route: 065
  18. LOVENOX [Concomitant]
     Active Substance: ENOXAPARIN SODIUM
     Indication: PRODUCT USED FOR UNKNOWN INDICATION
     Dosage: UNK, Q12H (6000 IU ANTI XA/0.6 ML SYRINGE)
     Route: 058
     Dates: start: 20170805
  19. AMIODARONE SANDOZ [Suspect]
     Active Substance: AMIODARONE
     Dosage: UNK
  20. ELIQUIS [Suspect]
     Active Substance: APIXABAN
     Indication: ANTICOAGULANT THERAPY
     Dosage: 5 MILLIGRAM, QD
     Route: 065
  21. CORTISONE [Concomitant]
     Active Substance: CORTISONE
     Dosage: 20 MG, QD, EASTER
     Route: 065
     Dates: end: 2019
  22. COLCHICINE. [Concomitant]
     Active Substance: COLCHICINE
     Indication: GOUT

REACTIONS (43)
  - Temperature intolerance [Recovered/Resolved]
  - Paralysis [Recovered/Resolved]
  - Blindness [Recovered/Resolved]
  - Renal injury [Recovered/Resolved]
  - Rheumatic disorder [Unknown]
  - Inflammation [Unknown]
  - Hypoaesthesia [Unknown]
  - Vomiting [Recovered/Resolved]
  - Gout [Unknown]
  - Pain in extremity [Recovering/Resolving]
  - Myalgia [Recovered/Resolved]
  - Arthralgia [Unknown]
  - Nerve injury [Recovered/Resolved]
  - Oedema peripheral [Recovered/Resolved]
  - Urinary tract disorder [Recovered/Resolved]
  - C-reactive protein increased [Recovered/Resolved]
  - Vitamin D decreased [Unknown]
  - Somatic dysfunction [Unknown]
  - Back pain [Unknown]
  - Nervousness [Recovered/Resolved]
  - Gait inability [Unknown]
  - Muscular weakness [Recovered/Resolved]
  - Nausea [Recovered/Resolved]
  - Off label use [Unknown]
  - Neck pain [Unknown]
  - Taste disorder [Recovered/Resolved]
  - Fatigue [Recovered/Resolved]
  - Arthralgia [Not Recovered/Not Resolved]
  - Hyperleukocytosis [Unknown]
  - Movement disorder [Unknown]
  - Product dispensing error [Unknown]
  - Weight decreased [Recovered/Resolved]
  - Pain [Unknown]
  - Tremor [Recovered/Resolved with Sequelae]
  - Blood creatinine increased [Recovered/Resolved]
  - Dizziness [Recovered/Resolved]
  - Vertigo [Not Recovered/Not Resolved]
  - Constipation [Recovered/Resolved]
  - Dyspnoea [Recovered/Resolved]
  - Benign prostatic hyperplasia [Unknown]
  - Anaemia [Unknown]
  - Hyperhidrosis [Unknown]
  - White blood cell disorder [Recovered/Resolved]

NARRATIVE: CASE EVENT DATE: 20111122
